FAERS Safety Report 23124386 (Version 1)
Quarter: 2023Q4

REPORT INFORMATION
  Report Type: Spontaneous
  Country: US (occurrence: None)
  Receive Date: 20231028
  Receipt Date: 20231028
  Transmission Date: 20240109
  Serious: No
  Sender: FDA-Public Use
  Company Number: None

PATIENT
  Sex: Female
  Weight: 54 kg

DRUGS (8)
  1. ARMODAFINIL [Suspect]
     Active Substance: ARMODAFINIL
     Indication: Hypersomnia
     Dosage: OTHER QUANTITY : 1 TABLET(S);?OTHER FREQUENCY : EVERYDAY;?
     Route: 048
  2. ARMODAFINIL [Concomitant]
     Active Substance: ARMODAFINIL
  3. EFFEXOR [Concomitant]
     Active Substance: VENLAFAXINE HYDROCHLORIDE
  4. IUD (Kyleena) [Concomitant]
  5. XYWAV [Concomitant]
     Active Substance: CALCIUM OXYBATE\MAGNESIUM OXYBATE\POTASSIUM OXYBATE\SODIUM OXYBATE
  6. IRON [Concomitant]
     Active Substance: IRON
  7. VITAMINS [Concomitant]
     Active Substance: VITAMINS
  8. biotin supplement [Concomitant]

REACTIONS (1)
  - Tachycardia [None]
